FAERS Safety Report 14671478 (Version 1)
Quarter: 2018Q1

REPORT INFORMATION
  Report Type: Other
  Country: FR (occurrence: FR)
  Receive Date: 20180323
  Receipt Date: 20180323
  Transmission Date: 20180509
  Serious: Yes (Death, Congenital Anomaly)
  Sender: FDA-Public Use
  Company Number: FR-TAKEDA-2018TUS007052

PATIENT
  Sex: Female

DRUGS (1)
  1. BRINTELLIX [Suspect]
     Active Substance: VORTIOXETINE HYDROBROMIDE
     Indication: DEPRESSIVE SYMPTOM
     Dosage: 20 MG, QD
     Route: 064
     Dates: start: 20171023, end: 20180108

REACTIONS (3)
  - Abortion induced [Fatal]
  - Foetal exposure during pregnancy [Recovered/Resolved]
  - Limb malformation [Fatal]

NARRATIVE: CASE EVENT DATE: 20180105
